FAERS Safety Report 21988220 (Version 2)
Quarter: 2023Q1

REPORT INFORMATION
  Report Type: Report from Study
  Country: US (occurrence: US)
  Receive Date: 20230214
  Receipt Date: 20230224
  Transmission Date: 20230418
  Serious: Yes (Hospitalization)
  Sender: FDA-Public Use
  Company Number: US-ABBVIE-4305366

PATIENT
  Sex: Female

DRUGS (3)
  1. VENCLEXTA [Suspect]
     Active Substance: VENETOCLAX
     Indication: Procedural complication
     Route: 048
     Dates: start: 202212, end: 202302
  2. VENCLEXTA [Suspect]
     Active Substance: VENETOCLAX
     Indication: Procedural complication
     Route: 048
     Dates: start: 20230206
  3. XOSPATA [Concomitant]
     Active Substance: GILTERITINIB
     Indication: Product used for unknown indication
     Dates: start: 20230206

REACTIONS (2)
  - Laboratory test abnormal [Unknown]
  - Off label use [Unknown]
